FAERS Safety Report 22930788 (Version 2)
Quarter: 2023Q4

REPORT INFORMATION
  Report Type: Report from Study
  Country: GB (occurrence: GB)
  Receive Date: 20230911
  Receipt Date: 20231117
  Transmission Date: 20240110
  Serious: Yes (Hospitalization, Other)
  Sender: FDA-Public Use
  Company Number: GB-UCBSA-2023043970

PATIENT
  Sex: Female

DRUGS (1)
  1. CERTOLIZUMAB PEGOL [Suspect]
     Active Substance: CERTOLIZUMAB PEGOL
     Indication: Rheumatoid arthritis
     Dosage: 200 MILLIGRAM, EV 2 WEEKS(QOW)
     Route: 058

REACTIONS (6)
  - Fall [Unknown]
  - Cerebral haemorrhage [Not Recovered/Not Resolved]
  - Fracture [Not Recovered/Not Resolved]
  - Medical procedure [Not Recovered/Not Resolved]
  - Intentional dose omission [Unknown]
  - Product storage error [Unknown]
